FAERS Safety Report 22018013 (Version 1)
Quarter: 2023Q1

REPORT INFORMATION
  Report Type: Spontaneous
  Country: US (occurrence: US)
  Receive Date: 20230221
  Receipt Date: 20230221
  Transmission Date: 20230418
  Serious: No
  Sender: FDA-Public Use
  Company Number: US-MYLANLABS-2023M1013913

PATIENT
  Sex: Female
  Weight: 78.93 kg

DRUGS (2)
  1. PROCTOFOAM HC [Suspect]
     Active Substance: HYDROCORTISONE ACETATE\PRAMOXINE HYDROCHLORIDE
     Indication: Haemorrhoids
     Dosage: 1 PERCENT, TID (3 TIMES DAILY FOR 1 WEEK)
     Route: 054
     Dates: end: 20230202
  2. DIBUCAINE [Concomitant]
     Active Substance: DIBUCAINE
     Indication: Local anaesthesia
     Dosage: UNK
     Route: 061

REACTIONS (1)
  - Drug ineffective [Unknown]
